FAERS Safety Report 14004193 (Version 2)
Quarter: 2018Q1

REPORT INFORMATION
  Report Type: Spontaneous
  Country: US (occurrence: US)
  Receive Date: 20170922
  Receipt Date: 20180124
  Transmission Date: 20180508
  Serious: No
  Sender: FDA-Public Use
  Company Number: US-JNJFOC-20170809082

PATIENT
  Sex: Female

DRUGS (1)
  1. LEVAQUIN [Suspect]
     Active Substance: LEVOFLOXACIN
     Indication: PRODUCT USED FOR UNKNOWN INDICATION
     Dosage: 5MG/5ML
     Route: 042
     Dates: start: 20150806

REACTIONS (3)
  - Expired product administered [Unknown]
  - Adverse drug reaction [Unknown]
  - Injury [Unknown]

NARRATIVE: CASE EVENT DATE: 20150806
